FAERS Safety Report 5235492-1 (Version None)
Quarter: 2007Q1

REPORT INFORMATION
  Report Type: 
  Country: None (occurrence: None)
  Receive Date: 20061208
  Receipt Date: 20060628
  Transmission Date: 20070707
  Serious: Yes (Other)
  Sender: FDA-Public Use
  Company Number: 2006UW13637

PATIENT
  Age: 41 Year
  Weight: 86.182 kg

DRUGS (3)
  1. CRESTOR [Suspect]
     Indication: HYPERCHOLESTEROLAEMIA
     Dosage: 10 MG PO
     Route: 048
     Dates: start: 20060601, end: 20060627
  2. NEXIUM ORAL [Concomitant]
  3. HYDROCHLOROTHIAZIDE W/IRBESARTAN [Concomitant]

REACTIONS (5)
  - ASTHENIA [None]
  - MUSCLE SPASMS [None]
  - MYALGIA [None]
  - PAIN [None]
  - SLUGGISHNESS [None]
